FAERS Safety Report 10330271 (Version 1)
Quarter: 2014Q3

REPORT INFORMATION
  Report Type: Spontaneous
  Country: CH (occurrence: CH)
  Receive Date: 20140721
  Receipt Date: 20140721
  Transmission Date: 20150326
  Serious: Yes (Hospitalization, Other)
  Sender: FDA-Public Use
  Company Number: PHHY2014CH087549

PATIENT
  Sex: Female

DRUGS (5)
  1. CELESTON [Suspect]
     Active Substance: BETAMETHASONE
     Route: 064
  2. 5-FLUOROURACIL [Suspect]
     Active Substance: FLUOROURACIL
     Route: 064
  3. DOCETAXEL [Suspect]
     Active Substance: DOCETAXEL
     Route: 064
  4. EPIRUBICIN [Suspect]
     Active Substance: EPIRUBICIN
     Route: 064
  5. CYCLOPHOSPHAMIDE. [Suspect]
     Active Substance: CYCLOPHOSPHAMIDE
     Route: 064

REACTIONS (12)
  - Caesarean section [None]
  - Pneumothorax [None]
  - Neonatal respiratory distress syndrome [Recovering/Resolving]
  - Foetal exposure during pregnancy [Unknown]
  - Pneumothorax [Recovering/Resolving]
  - Hyperbilirubinaemia [Recovering/Resolving]
  - Feeding disorder neonatal [Recovering/Resolving]
  - Anaemia neonatal [Recovering/Resolving]
  - Premature baby [Unknown]
  - Hypercapnia [Recovering/Resolving]
  - Hypoglycaemia [Recovering/Resolving]
  - Low birth weight baby [Unknown]
